FAERS Safety Report 5476322-2 (Version None)
Quarter: 2007Q4

REPORT INFORMATION
  Report Type: 
  Country: None (occurrence: None)
  Receive Date: 20071003
  Receipt Date: 20070921
  Transmission Date: 20080405
  Serious: Yes (Other)
  Sender: FDA-Public Use
  Company Number: US-PFIZER INC-2007058706

PATIENT
  Sex: Male
  Weight: 113.4 kg

DRUGS (13)
  1. LYRICA [Suspect]
     Indication: NEURALGIA
     Dates: start: 20060921, end: 20070715
  2. LYRICA [Suspect]
     Indication: NEUROPATHY PERIPHERAL
  3. NOVOLOG MIX 70/30 [Concomitant]
  4. ALL OTHER THERAPEUTIC PRODUCTS [Concomitant]
  5. SYMLIN [Concomitant]
  6. PROCRIT [Concomitant]
  7. ZANAFLEX [Concomitant]
  8. CIPROFLOXACIN [Concomitant]
  9. OMEPRAZOLE [Concomitant]
  10. LASIX [Concomitant]
  11. METFORMIN HCL [Concomitant]
  12. METOPROLOL SUCCINATE [Concomitant]
  13. SIMVASTATIN [Concomitant]

REACTIONS (5)
  - GASTRIC ULCER HAEMORRHAGE [None]
  - OEDEMA PERIPHERAL [None]
  - RASH [None]
  - SPINAL CORPECTOMY [None]
  - WEIGHT INCREASED [None]
